FAERS Safety Report 19401971 (Version 4)
Quarter: 2024Q2

REPORT INFORMATION
  Report Type: Report from Study
  Country: US (occurrence: US)
  Receive Date: 20210610
  Receipt Date: 20240509
  Transmission Date: 20240716
  Serious: Yes (Hospitalization, Other)
  Sender: FDA-Public Use
  Company Number: US-TAKEDA-US202016943

PATIENT
  Age: 63 Year
  Sex: Female
  Weight: 54 kg

DRUGS (15)
  1. TEDUGLUTIDE [Suspect]
     Active Substance: TEDUGLUTIDE
     Indication: Short-bowel syndrome
     Dosage: 0.26 MILLILITER, QD
     Route: 058
  2. TEDUGLUTIDE [Suspect]
     Active Substance: TEDUGLUTIDE
     Indication: Short-bowel syndrome
     Dosage: 0.26 MILLILITER, QD
     Route: 058
  3. TEDUGLUTIDE [Suspect]
     Active Substance: TEDUGLUTIDE
     Indication: Short-bowel syndrome
     Dosage: 0.26 MILLILITER, QD
     Route: 058
  4. TEDUGLUTIDE [Suspect]
     Active Substance: TEDUGLUTIDE
     Indication: Short-bowel syndrome
     Dosage: 0.26 MILLILITER, QD
     Route: 058
  5. TEDUGLUTIDE [Suspect]
     Active Substance: TEDUGLUTIDE
     Dosage: 0.31 MILLILITER, QD
     Route: 058
  6. TEDUGLUTIDE [Suspect]
     Active Substance: TEDUGLUTIDE
     Dosage: 0.31 MILLILITER, QD
     Route: 058
  7. TEDUGLUTIDE [Suspect]
     Active Substance: TEDUGLUTIDE
     Dosage: 0.31 MILLILITER, QD
     Route: 058
  8. TEDUGLUTIDE [Suspect]
     Active Substance: TEDUGLUTIDE
     Dosage: 0.31 MILLILITER, QD
     Route: 058
  9. CEFEPIME HYDROCHLORIDE [Concomitant]
     Active Substance: CEFEPIME HYDROCHLORIDE
     Dosage: UNK
     Route: 065
  10. METRONIDAZOLE [Concomitant]
     Active Substance: METRONIDAZOLE
     Dosage: UNK
     Route: 065
  11. CITALOPRAM [Concomitant]
     Active Substance: CITALOPRAM\CITALOPRAM HYDROBROMIDE
     Dosage: UNK
     Route: 065
  12. VITAMIN D2 [Concomitant]
     Active Substance: ERGOCALCIFEROL
     Dosage: UNK
     Route: 065
  13. TYLENOL [Concomitant]
     Active Substance: ACETAMINOPHEN
     Dosage: UNK
     Route: 065
  14. CYCLOBENZAPRINE HYDROCHLORIDE [Concomitant]
     Active Substance: CYCLOBENZAPRINE HYDROCHLORIDE
     Dosage: UNK
     Route: 065
  15. TRAMADOL HCL [Concomitant]
     Active Substance: TRAMADOL HYDROCHLORIDE
     Dosage: UNK
     Route: 065

REACTIONS (4)
  - Hospitalisation [Unknown]
  - Surgery [Unknown]
  - Fistula [Unknown]
  - Pain [Unknown]

NARRATIVE: CASE EVENT DATE: 20210601
